FAERS Safety Report 25784746 (Version 1)
Quarter: 2025Q3

REPORT INFORMATION
  Report Type: Spontaneous
  Country: US (occurrence: US)
  Receive Date: 20250910
  Receipt Date: 20250910
  Transmission Date: 20251020
  Serious: Yes (Other)
  Sender: SANOFI AVENTIS
  Company Number: US-SANOFI-02642987

PATIENT
  Sex: Female

DRUGS (2)
  1. FERRLECIT [Suspect]
     Active Substance: SODIUM FERRIC GLUCONATE COMPLEX
     Indication: Mineral supplementation
     Route: 042
     Dates: end: 20250822
  2. TYLENOL [Concomitant]
     Active Substance: ACETAMINOPHEN

REACTIONS (5)
  - Unresponsive to stimuli [Unknown]
  - Pain in extremity [Unknown]
  - Presyncope [Unknown]
  - Musculoskeletal stiffness [Unknown]
  - Back pain [Unknown]

NARRATIVE: CASE EVENT DATE: 20250101
